FAERS Safety Report 8976707 (Version 1)
Quarter: 2012Q4

REPORT INFORMATION
  Report Type: 
  Country: US (occurrence: US)
  Receive Date: 20121220
  Receipt Date: 20121220
  Transmission Date: 20130627
  Serious: Yes (Death)
  Sender: FDA-Public Use
  Company Number: PHEH2012US018433

PATIENT
  Sex: Female

DRUGS (2)
  1. GLEEVEC [Suspect]
     Indication: CHRONIC MYELOID LEUKAEMIA
     Dosage: 400 mg, daily
     Route: 048
     Dates: start: 200111
  2. GLEEVEC [Suspect]
     Indication: GASTROINTESTINAL CARCINOMA
     Dosage: 400 mg, QD
     Route: 048

REACTIONS (7)
  - Death [Fatal]
  - Limb discomfort [Unknown]
  - Anxiety [Unknown]
  - Hyperkalaemia [Unknown]
  - Insomnia [Unknown]
  - Hypoaesthesia [Unknown]
  - Asthenia [Unknown]
